FAERS Safety Report 18451554 (Version 2)
Quarter: 2020Q4

REPORT INFORMATION
  Report Type: Spontaneous
  Country: US (occurrence: US)
  Receive Date: 20201102
  Receipt Date: 20201203
  Transmission Date: 20210114
  Serious: No
  Sender: FDA-Public Use
  Company Number: US-GLAXOSMITHKLINE-US2020213942

PATIENT
  Age: 80 Year
  Sex: Female

DRUGS (1)
  1. BREO ELLIPTA [Suspect]
     Active Substance: FLUTICASONE FUROATE\VILANTEROL TRIFENATATE
     Indication: PRODUCT USED FOR UNKNOWN INDICATION
     Dosage: 1 PUFF(S), QD
     Route: 055

REACTIONS (6)
  - Rhinorrhoea [Unknown]
  - Nasal pruritus [Unknown]
  - Product complaint [Unknown]
  - Accidental overdose [Unknown]
  - Malaise [Unknown]
  - Headache [Unknown]

NARRATIVE: CASE EVENT DATE: 20201026
